FAERS Safety Report 24860388 (Version 1)
Quarter: 2025Q1

REPORT INFORMATION
  Report Type: Report from Study
  Country: US (occurrence: US)
  Receive Date: 20250120
  Receipt Date: 20250120
  Transmission Date: 20250409
  Serious: Yes (Hospitalization, Other)
  Sender: ABBVIE
  Company Number: US-ABBVIE-6089037

PATIENT
  Age: 50 Year
  Sex: Female

DRUGS (2)
  1. RINVOQ [Suspect]
     Active Substance: UPADACITINIB
     Indication: Eczema
     Dosage: EXTENDED RELEASE?FORM STRENGTH: 15MG
     Route: 048
     Dates: start: 202301, end: 202412
  2. RINVOQ [Suspect]
     Active Substance: UPADACITINIB
     Indication: Eczema
     Dosage: EXTENDED RELEASE?FORM STRENGTH: 15MG
     Route: 048
     Dates: start: 202412

REACTIONS (1)
  - Spinal osteoarthritis [Unknown]

NARRATIVE: CASE EVENT DATE: 20241217
